FAERS Safety Report 19187891 (Version 2)
Quarter: 2021Q2

REPORT INFORMATION
  Report Type: Spontaneous
  Country: US (occurrence: US)
  Receive Date: 20210428
  Receipt Date: 20210531
  Transmission Date: 20210717
  Serious: No
  Sender: FDA-Public Use
  Company Number: US-GLAXOSMITHKLINE-US2021092618

PATIENT
  Age: 17 Year
  Sex: Female

DRUGS (1)
  1. FLOVENT HFA [Suspect]
     Active Substance: FLUTICASONE PROPIONATE
     Indication: PRODUCT USED FOR UNKNOWN INDICATION
     Dosage: 1 PUFF(S), 1D, 134A DC 120D US/T
     Route: 055

REACTIONS (4)
  - Wrong technique in product usage process [Unknown]
  - Product complaint [Unknown]
  - Product dose omission issue [Not Recovered/Not Resolved]
  - Underdose [Unknown]

NARRATIVE: CASE EVENT DATE: 202104
